FAERS Safety Report 11201858 (Version 1)
Quarter: 2015Q2

REPORT INFORMATION
  Report Type: Spontaneous
  Country: DE (occurrence: DE)
  Receive Date: 20150619
  Receipt Date: 20150619
  Transmission Date: 20150821
  Serious: Yes (Hospitalization)
  Sender: FDA-Public Use
  Company Number: US-ASTRAZENECA-2015SE59824

PATIENT
  Age: 248 Day
  Sex: Female

DRUGS (2)
  1. PALIVIZUMAB [Suspect]
     Active Substance: PALIVIZUMAB
     Indication: ANTIVIRAL PROPHYLAXIS
     Dosage: 15 MG/KG MONTHLY (30-SEP-2014 84 MG, 28-OCT-2014 90 MG, 25-NOV-2014 93 MG, 19-DEC-2014 98 MG)
     Route: 030
     Dates: start: 20140930, end: 20141219
  2. PALIVIZUMAB [Suspect]
     Active Substance: PALIVIZUMAB
     Indication: ANTIVIRAL PROPHYLAXIS
     Dosage: 15 MG/KG MONTHLY (21-JAN-2015 100MG, 17-FEB-2015 100 MG, 24-MAR-2015 100 MG)
     Route: 030
     Dates: start: 20150121, end: 20150324

REACTIONS (1)
  - Bronchopneumonia [Recovered/Resolved]

NARRATIVE: CASE EVENT DATE: 20150108
